FAERS Safety Report 22210272 (Version 1)
Quarter: 2023Q2

REPORT INFORMATION
  Report Type: Spontaneous
  Country: US (occurrence: US)
  Receive Date: 20230414
  Receipt Date: 20230414
  Transmission Date: 20230722
  Serious: No
  Sender: FDA-Public Use
  Company Number: US-AMGEN-USASP2023062294

PATIENT
  Sex: Male

DRUGS (1)
  1. PROLIA [Suspect]
     Active Substance: DENOSUMAB
     Indication: Fibrous dysplasia of bone
     Dosage: 60 MILLIGRAM, Q6MO
     Route: 065
     Dates: start: 20220309

REACTIONS (1)
  - Off label use [Unknown]
